FAERS Safety Report 12775781 (Version 1)
Quarter: 2016Q3

REPORT INFORMATION
  Report Type: Spontaneous
  Country: US (occurrence: US)
  Receive Date: 20160923
  Receipt Date: 20160923
  Transmission Date: 20161109
  Serious: No
  Sender: FDA-Public Use
  Company Number: US-PFIZER INC-2016444172

PATIENT
  Age: 55 Year
  Sex: Female
  Weight: 71 kg

DRUGS (1)
  1. ALAVERT ALLERGY [Suspect]
     Active Substance: LORATADINE
     Indication: LIP SWELLING
     Dosage: 10 MG, 1X/DAY
     Route: 048
     Dates: start: 20160919

REACTIONS (2)
  - Lymphadenopathy [Unknown]
  - Product use issue [Unknown]

NARRATIVE: CASE EVENT DATE: 20160919
